FAERS Safety Report 14338186 (Version 1)
Quarter: 2017Q4

REPORT INFORMATION
  Report Type: Spontaneous
  Country: CH (occurrence: CH)
  Receive Date: 20171229
  Receipt Date: 20171229
  Transmission Date: 20180321
  Serious: Yes (Other)
  Sender: FDA-Public Use
  Company Number: CH-JNJFOC-20171235118

PATIENT
  Sex: Female

DRUGS (2)
  1. XARELTO [Suspect]
     Active Substance: RIVAROXABAN
     Indication: DEEP VEIN THROMBOSIS
     Route: 048
     Dates: start: 20170929, end: 20171201
  2. FRAXIFORTE [Suspect]
     Active Substance: NADROPARIN CALCIUM
     Indication: DEEP VEIN THROMBOSIS
     Route: 030
     Dates: start: 201712

REACTIONS (1)
  - Exposure during pregnancy [Unknown]
